FAERS Safety Report 20060506 (Version 1)
Quarter: 2021Q4

REPORT INFORMATION
  Report Type: Spontaneous
  Country: US (occurrence: US)
  Receive Date: 20211112
  Receipt Date: 20211112
  Transmission Date: 20220303
  Serious: Yes (Other)
  Sender: FDA-Public Use
  Company Number: US-SA-SAC20211109001012

PATIENT
  Age: 50 Year
  Sex: Female

DRUGS (8)
  1. DUPIXENT [Suspect]
     Active Substance: DUPILUMAB
     Indication: Osteoarthritis
     Dosage: 300 MG, QOW
     Route: 058
     Dates: start: 202011
  2. DUPIXENT [Suspect]
     Active Substance: DUPILUMAB
     Indication: Nasal polyps
  3. ATORVASTATIN [Concomitant]
     Active Substance: ATORVASTATIN
     Dosage: UNK
  4. METHIMAZOLE [Concomitant]
     Active Substance: METHIMAZOLE
     Dosage: UNK
  5. SPIRONOLACTONE [Concomitant]
     Active Substance: SPIRONOLACTONE
     Dosage: UNK
  6. TEMAZEPAM [Concomitant]
     Active Substance: TEMAZEPAM
     Dosage: UNK
  7. HYDROCHLOROTHIAZIDE [Concomitant]
     Active Substance: HYDROCHLOROTHIAZIDE
     Dosage: UNK
  8. PREGABALIN [Concomitant]
     Active Substance: PREGABALIN
     Dosage: UNK

REACTIONS (16)
  - Basedow^s disease [Unknown]
  - Hyperthyroidism [Unknown]
  - Endocrine ophthalmopathy [Unknown]
  - COVID-19 [Unknown]
  - SARS-CoV-2 test positive [Unknown]
  - Hyposmia [Unknown]
  - Taste disorder [Unknown]
  - Injection site urticaria [Unknown]
  - Injection site dryness [Unknown]
  - Injection site erythema [Unknown]
  - Nasal congestion [Unknown]
  - Upper-airway cough syndrome [Unknown]
  - Facial discomfort [Unknown]
  - Insomnia [Unknown]
  - Conjunctivitis [Unknown]
  - Product use in unapproved indication [Unknown]

NARRATIVE: CASE EVENT DATE: 20201101
